FAERS Safety Report 8044661-7 (Version None)
Quarter: 2012Q1

REPORT INFORMATION
  Report Type: 
  Country: None (occurrence: None)
  Receive Date: 20120113
  Receipt Date: 20120104
  Transmission Date: 20120608
  Serious: Yes (Hospitalization)
  Sender: FDA-Public Use
  Company Number: IE-NOVOPROD-342548

PATIENT

DRUGS (11)
  1. VICTOZA [Suspect]
     Indication: TYPE 2 DIABETES MELLITUS
     Dosage: UNK
     Route: 065
  2. METFORMIN HCL [Concomitant]
  3. LEVOTHYROXINE SODIUM [Concomitant]
  4. LYRICA [Concomitant]
  5. LEXAPRO [Concomitant]
  6. DIAMICRON [Concomitant]
  7. CRESTOR [Concomitant]
  8. BISOPROLOL FUMARATE [Concomitant]
  9. ASPIRIN [Concomitant]
  10. PANTOPRAZOLE [Concomitant]
  11. NITROFURANTOIN [Concomitant]
     Dosage: 50MG NOCTE

REACTIONS (1)
  - LIVER FUNCTION TEST ABNORMAL [None]
